FAERS Safety Report 10025449 (Version 1)
Quarter: 2014Q1

REPORT INFORMATION
  Report Type: Report from Study
  Country: US (occurrence: US)
  Receive Date: 20140320
  Receipt Date: 20140320
  Transmission Date: 20141002
  Serious: Yes (Death)
  Sender: FDA-Public Use
  Company Number: US-EXELIXIS-XL18414004094

PATIENT
  Age: 67 Year
  Sex: Male
  Weight: 83 kg

DRUGS (3)
  1. XL184 [Suspect]
     Indication: PROSTATE CANCER METASTATIC
     Dosage: 60 MG, QD
     Route: 048
     Dates: start: 20130911, end: 20140215
  2. DOCETAXEL [Concomitant]
     Indication: PROSTATE CANCER METASTATIC
     Dosage: 75 MG/M2, Q3WEEKS
     Route: 042
     Dates: start: 20130911, end: 20140204
  3. PREDNISONE [Concomitant]
     Indication: PROSTATE CANCER METASTATIC
     Dosage: 5 MG, BID
     Route: 048
     Dates: start: 20130911, end: 20140215

REACTIONS (1)
  - Sudden death [Fatal]
